FAERS Safety Report 4655863-1 (Version None)
Quarter: 2005Q2

REPORT INFORMATION
  Report Type: 
  Country: None (occurrence: None)
  Receive Date: 20050506
  Receipt Date: 20050506
  Transmission Date: 20051028
  Serious: No
  Sender: FDA-Public Use
  Company Number: None

PATIENT
  Sex: Male
  Weight: 65.7716 kg

DRUGS (3)
  1. ABACAVIR [Suspect]
     Indication: HIV INFECTION
     Dosage: ONE QD PO
     Route: 048
     Dates: start: 20050420, end: 20050430
  2. EPIVIR [Suspect]
  3. EPZICOM [Suspect]

REACTIONS (1)
  - DRUG HYPERSENSITIVITY [None]
